FAERS Safety Report 22372718 (Version 2)
Quarter: 2023Q2

REPORT INFORMATION
  Report Type: Spontaneous
  Country: CN (occurrence: CN)
  Receive Date: 20230526
  Receipt Date: 20230529
  Transmission Date: 20230722
  Serious: Yes (Hospitalization, Other)
  Sender: FDA-Public Use
  Company Number: CN-009507513-2305CHN005324

PATIENT
  Age: 63 Year
  Sex: Male

DRUGS (37)
  1. KEYTRUDA [Suspect]
     Active Substance: PEMBROLIZUMAB
     Indication: Oesophageal squamous cell carcinoma
     Dosage: 200 MG, Q3W, FIRST CYCLE, FOR 6 CYCLES
     Dates: start: 20210327, end: 20220327
  2. KEYTRUDA [Suspect]
     Active Substance: PEMBROLIZUMAB
     Dosage: 200 MG, Q3W, THE SECOND CYCLE, FOR 6 CYCLES
     Dates: start: 20210421, end: 20210421
  3. KEYTRUDA [Suspect]
     Active Substance: PEMBROLIZUMAB
     Dosage: 200 MILLIGRAM, Q3W, THE THIRD CYCLE
     Dates: start: 20210517, end: 20210517
  4. KEYTRUDA [Suspect]
     Active Substance: PEMBROLIZUMAB
     Dosage: 200 MILLIGRAM, Q3W, THE FOURTH CYCLE
     Dates: start: 20210611, end: 20210611
  5. KEYTRUDA [Suspect]
     Active Substance: PEMBROLIZUMAB
     Dosage: 200 MILLIGRAM, Q3W
     Dates: start: 20210707, end: 20210707
  6. KEYTRUDA [Suspect]
     Active Substance: PEMBROLIZUMAB
     Dosage: 200 MILLIGRAM, Q3W
     Dates: start: 20211222, end: 20211222
  7. KEYTRUDA [Suspect]
     Active Substance: PEMBROLIZUMAB
     Dosage: UNK
     Dates: start: 202205, end: 20220706
  8. KEYTRUDA [Suspect]
     Active Substance: PEMBROLIZUMAB
     Dosage: 200MG, Q3W
     Dates: start: 20220908, end: 20220908
  9. KEYTRUDA [Suspect]
     Active Substance: PEMBROLIZUMAB
     Dosage: UNK
     Dates: start: 20221013, end: 20221013
  10. KEYTRUDA [Suspect]
     Active Substance: PEMBROLIZUMAB
     Dosage: UNK
     Dates: start: 20221109, end: 20221109
  11. KEYTRUDA [Suspect]
     Active Substance: PEMBROLIZUMAB
     Dosage: UNK
     Dates: start: 20221215, end: 20221215
  12. KEYTRUDA [Suspect]
     Active Substance: PEMBROLIZUMAB
     Dosage: UNK
     Dates: start: 20230216, end: 20230216
  13. KEYTRUDA [Suspect]
     Active Substance: PEMBROLIZUMAB
     Dosage: UNK
     Dates: start: 20230315, end: 20230315
  14. FLUOROURACIL [Suspect]
     Active Substance: FLUOROURACIL
     Indication: Oesophageal squamous cell carcinoma
     Dosage: 800 MG/M2, DAYS 1-5, Q3W, 6 CYCLES
     Dates: start: 20210327, end: 20210327
  15. FLUOROURACIL [Suspect]
     Active Substance: FLUOROURACIL
     Dosage: 800 MG/M2, DAYS 1-5, Q3W, THE SECOND CYCLE
     Dates: start: 20210421, end: 20210421
  16. FLUOROURACIL [Suspect]
     Active Substance: FLUOROURACIL
     Dosage: 800 MG/M2, DAYS 1-5, Q3W, THE THIRD CYCLE
     Dates: start: 20210517, end: 20210517
  17. FLUOROURACIL [Suspect]
     Active Substance: FLUOROURACIL
     Dosage: 800 MG/M2, DAYS 1-5, Q3W, THE FOURTH CYCLE
     Dates: start: 20210611, end: 20210611
  18. FLUOROURACIL [Suspect]
     Active Substance: FLUOROURACIL
     Dosage: 800 MG/M2, DAYS 1-5, Q3W
     Dates: start: 20210707, end: 20210707
  19. FLUOROURACIL [Suspect]
     Active Substance: FLUOROURACIL
     Dosage: 800 MG/M2, DAYS 1-5, Q3W
     Dates: start: 20211222, end: 20211222
  20. FLUOROURACIL [Suspect]
     Active Substance: FLUOROURACIL
     Dosage: UNK
     Dates: start: 202205, end: 20220706
  21. FLUOROURACIL [Suspect]
     Active Substance: FLUOROURACIL
     Dosage: 800 MG/M2, DAYS 1-5, Q3W
     Dates: start: 20220908, end: 20220908
  22. FLUOROURACIL [Suspect]
     Active Substance: FLUOROURACIL
     Dosage: UNK
     Dates: start: 20221013, end: 20221013
  23. FLUOROURACIL [Suspect]
     Active Substance: FLUOROURACIL
     Dosage: UNK
     Dates: start: 20221109, end: 20221109
  24. FLUOROURACIL [Suspect]
     Active Substance: FLUOROURACIL
     Dosage: UNK
     Dates: start: 20221215, end: 20221215
  25. FLUOROURACIL [Suspect]
     Active Substance: FLUOROURACIL
     Dosage: UNK
     Dates: start: 20230216, end: 20230216
  26. FLUOROURACIL [Suspect]
     Active Substance: FLUOROURACIL
     Dosage: UNK
     Dates: start: 20230315, end: 20230315
  27. CISPLATIN [Suspect]
     Active Substance: CISPLATIN
     Indication: Oesophageal squamous cell carcinoma
     Dosage: 80 MG/M2, IV, Q3W, 6 CYCLES
     Route: 042
     Dates: start: 20210327, end: 20210327
  28. CISPLATIN [Suspect]
     Active Substance: CISPLATIN
     Dosage: 80 MG/M2, IV, Q3W, THE SECOND CYCLE
     Route: 042
     Dates: start: 20210421, end: 20210421
  29. CISPLATIN [Suspect]
     Active Substance: CISPLATIN
     Dosage: 80 MG/M2, IV, Q3W, THE THIRD CYCLE
     Route: 042
     Dates: start: 20210517, end: 20210517
  30. CISPLATIN [Suspect]
     Active Substance: CISPLATIN
     Dosage: 80 MG/M2, IV, Q3W, THE FOURTH CYCLE
     Route: 042
     Dates: start: 20210611, end: 20210611
  31. CISPLATIN [Suspect]
     Active Substance: CISPLATIN
     Dosage: 80 MG/M2, IV, Q3W
     Route: 042
     Dates: start: 20210707, end: 20210707
  32. CISPLATIN [Suspect]
     Active Substance: CISPLATIN
     Dosage: 80 MG/M2, IV, Q3W
     Route: 042
     Dates: start: 20211222, end: 20211222
  33. CISPLATIN [Suspect]
     Active Substance: CISPLATIN
     Dosage: UNK
     Dates: start: 20221013, end: 20221013
  34. CISPLATIN [Suspect]
     Active Substance: CISPLATIN
     Dosage: UNK
     Dates: start: 20221109, end: 20221109
  35. CISPLATIN [Suspect]
     Active Substance: CISPLATIN
     Dosage: UNK
     Dates: start: 20221215, end: 20221215
  36. CISPLATIN [Suspect]
     Active Substance: CISPLATIN
     Dosage: UNK
     Dates: start: 20230216, end: 20230216
  37. CISPLATIN [Suspect]
     Active Substance: CISPLATIN
     Dosage: UNK
     Dates: start: 20230315, end: 20230315

REACTIONS (14)
  - Jaundice cholestatic [Recovered/Resolved]
  - Renal injury [Unknown]
  - Neurodegenerative disorder [Unknown]
  - Malignant neoplasm progression [Unknown]
  - Colitis [Recovered/Resolved]
  - Therapy partial responder [Unknown]
  - Therapy partial responder [Unknown]
  - Therapy partial responder [Unknown]
  - Degenerative bone disease [Unknown]
  - White matter lesion [Unknown]
  - Decreased appetite [Unknown]
  - Inappropriate schedule of product administration [Unknown]
  - Inappropriate schedule of product administration [Unknown]
  - Inappropriate schedule of product administration [Unknown]

NARRATIVE: CASE EVENT DATE: 20210421
